FAERS Safety Report 20748637 (Version 1)
Quarter: 2022Q2

REPORT INFORMATION
  Report Type: Spontaneous
  Country: US (occurrence: US)
  Receive Date: 20220426
  Receipt Date: 20220426
  Transmission Date: 20220721
  Serious: Yes (Other)
  Sender: FDA-Public Use
  Company Number: US-BRISTOL-MYERS SQUIBB COMPANY-2022-021928

PATIENT
  Age: 71 Year
  Sex: Female
  Weight: 53 kg

DRUGS (2)
  1. YERVOY [Suspect]
     Active Substance: IPILIMUMAB
     Indication: Non-small cell lung cancer
     Dosage: DOSE 53 MG FREQUENCY EVERY 6 WEEK?STRENGTH AND PRESENTATION : 50 MG VIAL
     Route: 042
  2. OPDIVO [Suspect]
     Active Substance: NIVOLUMAB
     Indication: Non-small cell lung cancer
     Dosage: DOSE 360 MG FREQUENCY : EVERY 3 WEEKS?STRENGTH AND PRESENTATION: 100 MG VIAL
     Route: 042

REACTIONS (2)
  - Adverse event [Unknown]
  - Intentional product use issue [Unknown]
